FAERS Safety Report 7294083-1 (Version None)
Quarter: 2011Q1

REPORT INFORMATION
  Report Type: 
  Country: None (occurrence: None)
  Receive Date: 20110215
  Receipt Date: 20110201
  Transmission Date: 20110831
  Serious: Yes (Other)
  Sender: FDA-Public Use
  Company Number: US-CELGENEUS-163-20785-10122997

PATIENT
  Sex: Male

DRUGS (8)
  1. ZOMETA [Concomitant]
     Indication: MULTIPLE MYELOMA
     Route: 051
     Dates: start: 20060601
  2. PLAVIX [Concomitant]
     Route: 065
  3. DEXAMETHASONE [Concomitant]
     Indication: MULTIPLE MYELOMA
     Route: 065
     Dates: start: 20060601
  4. METOPROLOL [Concomitant]
     Route: 065
  5. THALOMID [Suspect]
     Indication: MULTIPLE MYELOMA
     Route: 048
     Dates: start: 20060601
  6. ASPIRIN [Concomitant]
     Route: 065
  7. THALOMID [Suspect]
     Route: 048
     Dates: start: 20081101, end: 20101201
  8. LISINOPRIL [Concomitant]
     Route: 065

REACTIONS (2)
  - TRANSIENT ISCHAEMIC ATTACK [None]
  - VESTIBULAR DISORDER [None]
